FAERS Safety Report 16937644 (Version 1)
Quarter: 2019Q4

REPORT INFORMATION
  Report Type: Spontaneous
  Country: GB (occurrence: GB)
  Receive Date: 20191019
  Receipt Date: 20191019
  Transmission Date: 20200122
  Serious: Yes (Death)
  Sender: FDA-Public Use
  Company Number: GB-AUROBINDO-AUR-APL-2019-067694

PATIENT
  Age: 28 Year

DRUGS (1)
  1. PARACETAMOL 500MG [Suspect]
     Active Substance: ACETAMINOPHEN
     Indication: PRODUCT USED FOR UNKNOWN INDICATION
     Dosage: 750 MILLIGRAM, EVERY 5 WEEK
     Route: 002
     Dates: start: 20190920

REACTIONS (1)
  - Erythema [Fatal]

NARRATIVE: CASE EVENT DATE: 20190928
